FAERS Safety Report 4711086-9 (Version None)
Quarter: 2005Q3

REPORT INFORMATION
  Report Type: 
  Country: None (occurrence: None)
  Receive Date: 20050707
  Receipt Date: 20050630
  Transmission Date: 20060218
  Serious: Yes (Other)
  Sender: FDA-Public Use
  Company Number: GBWYE677319MAY05

PATIENT
  Age: 49 Year
  Sex: Female

DRUGS (3)
  1. EFFEXOR XR [Suspect]
     Indication: DEPRESSION
     Dosage: 75, 37.5 MG 1X PER 1 DAY ORAL
     Route: 048
     Dates: start: 20050401, end: 20050101
  2. EFFEXOR XR [Suspect]
     Indication: DEPRESSION
     Dosage: 75, 37.5 MG 1X PER 1 DAY ORAL
     Route: 048
     Dates: start: 20050101, end: 20050601
  3. LITHIUM CARBONATE [Concomitant]

REACTIONS (3)
  - DRUG WITHDRAWAL SYNDROME [None]
  - JOINT STIFFNESS [None]
  - TRISMUS [None]
